FAERS Safety Report 5872609-X (Version None)
Quarter: 2008Q3

REPORT INFORMATION
  Report Type: 
  Country: None (occurrence: None)
  Receive Date: 20080905
  Receipt Date: 20080827
  Transmission Date: 20090109
  Serious: Yes (Death)
  Sender: FDA-Public Use
  Company Number: EC-ROCHE-583226

PATIENT
  Age: 68 Year
  Sex: Female
  Weight: 67 kg

DRUGS (5)
  1. XELODA [Suspect]
     Route: 048
     Dates: start: 20080401, end: 20080629
  2. AVASTIN [Suspect]
     Route: 042
     Dates: start: 20080401, end: 20080629
  3. ZALDIAR [Concomitant]
     Indication: PAIN
     Route: 048
     Dates: start: 20070101, end: 20080629
  4. TRAMAL [Concomitant]
     Indication: PAIN
     Route: 048
     Dates: start: 20071201, end: 20080629
  5. NEXIUM [Concomitant]
     Indication: PROPHYLAXIS
     Dosage: DRUG NAME: NEXIUM 1-2-3
     Route: 048
     Dates: start: 20080401, end: 20080629

REACTIONS (1)
  - DISEASE PROGRESSION [None]
